FAERS Safety Report 24617663 (Version 1)
Quarter: 2024Q4

REPORT INFORMATION
  Report Type: Spontaneous
  Country: US (occurrence: US)
  Receive Date: 20241114
  Receipt Date: 20241114
  Transmission Date: 20250115
  Serious: Yes (Other)
  Sender: BAUSCH AND LOMB
  Company Number: US-BAUSCH-BL-2024-016454

PATIENT
  Sex: Female

DRUGS (3)
  1. CARDIZEM CD [Suspect]
     Active Substance: DILTIAZEM HYDROCHLORIDE
     Indication: Hypertension
     Dosage: PREVIOUSLY ON A LOWER DOSE OF CARDIZEM CD (UNKNOWN STRENGTH AND FREQUENCY)
     Route: 065
  2. CARDIZEM CD [Suspect]
     Active Substance: DILTIAZEM HYDROCHLORIDE
     Indication: Cardiac disorder
     Route: 048
     Dates: start: 2023
  3. LOPRESSOR [Suspect]
     Active Substance: METOPROLOL TARTRATE
     Indication: Hypertension
     Route: 065

REACTIONS (4)
  - Seizure [Unknown]
  - Nephrolithiasis [Unknown]
  - Hypertension [Unknown]
  - Product availability issue [Unknown]
